FAERS Safety Report 4294214-1 (Version None)
Quarter: 2004Q1

REPORT INFORMATION
  Report Type: 
  Country: None (occurrence: None)
  Receive Date: 20040211
  Receipt Date: 20040130
  Transmission Date: 20041129
  Serious: Yes (Hospitalization)
  Sender: FDA-Public Use
  Company Number: CLON000034

PATIENT
  Age: 60 Year
  Sex: Male
  Weight: 95 kg

DRUGS (2)
  1. DURACLON [Suspect]
     Indication: PAIN
     Dosage: 370 MCG DAILY INTRATHECAL
     Route: 037
  2. BUPIVACAINE [Suspect]
     Indication: PAIN
     Dosage: 3.7 MG DAILY INTRATHECAL
     Route: 037

REACTIONS (4)
  - BLOOD PRESSURE DECREASED [None]
  - PLEURAL EFFUSION [None]
  - POST PROCEDURAL COMPLICATION [None]
  - VASCULAR RESISTANCE SYSTEMIC DECREASED [None]
